FAERS Safety Report 8016038-1 (Version None)
Quarter: 2011Q4

REPORT INFORMATION
  Report Type: 
  Country: None (occurrence: None)
  Receive Date: 20111228
  Receipt Date: 20111228
  Transmission Date: 20120403
  Serious: Yes (Hospitalization)
  Sender: FDA-Public Use
  Company Number: None

PATIENT
  Sex: Female
  Weight: 50.5 kg

DRUGS (2)
  1. CARBOPLATIN [Suspect]
     Dosage: 533 MG
     Dates: end: 20111128
  2. TAXOL [Suspect]
     Dosage: 261 MG
     Dates: end: 20111128

REACTIONS (7)
  - ILEUS [None]
  - CONSTIPATION [None]
  - ABDOMINAL DISTENSION [None]
  - GASTROINTESTINAL SOUNDS ABNORMAL [None]
  - DECREASED APPETITE [None]
  - SMALL INTESTINAL OBSTRUCTION [None]
  - ASCITES [None]
